FAERS Safety Report 6772521-8 (Version None)
Quarter: 2010Q2

REPORT INFORMATION
  Report Type: 
  Country: None (occurrence: None)
  Receive Date: 20100616
  Receipt Date: 20090928
  Transmission Date: 20101027
  Serious: No
  Sender: FDA-Public Use
  Company Number: US-ASTRAZENECA-2009SE16219

PATIENT
  Sex: Male
  Weight: 62.6 kg

DRUGS (6)
  1. PULMICORT RESPULES [Suspect]
     Route: 055
     Dates: start: 20070801, end: 20090301
  2. ALLOPURINOL [Concomitant]
  3. NASACORT [Concomitant]
  4. ASTELIN [Concomitant]
  5. PREDNISONE [Concomitant]
  6. EPIDURAL INJECTION [Concomitant]

REACTIONS (1)
  - CUSHING'S SYNDROME [None]
